FAERS Safety Report 5088807-1 (Version None)
Quarter: 2006Q3

REPORT INFORMATION
  Report Type: 
  Country: None (occurrence: None)
  Receive Date: 20060825
  Receipt Date: 20060821
  Transmission Date: 20061208
  Serious: Yes (Other)
  Sender: FDA-Public Use
  Company Number: IL-GLAXOSMITHKLINE-B0435035A

PATIENT
  Age: 36 Year
  Sex: Male
  Weight: 75 kg

DRUGS (4)
  1. ZIAGEN [Suspect]
     Indication: HIV INFECTION
     Dosage: 300MG TWICE PER DAY
     Route: 048
     Dates: start: 20060815, end: 20060819
  2. COMBIVIR [Concomitant]
     Indication: HIV INFECTION
     Dosage: 1TAB TWICE PER DAY
     Route: 048
     Dates: start: 20060820
  3. EPIVIR [Concomitant]
     Indication: HIV INFECTION
     Dosage: 300MG PER DAY
     Route: 048
     Dates: start: 20060815, end: 20060820
  4. KALETRA [Concomitant]
     Indication: HIV INFECTION
     Dosage: 3TAB TWICE PER DAY
     Route: 048
     Dates: start: 20050208

REACTIONS (4)
  - ABDOMINAL PAIN [None]
  - DYSPNOEA [None]
  - PRURITUS [None]
  - PYREXIA [None]
